FAERS Safety Report 23868423 (Version 2)
Quarter: 2024Q2

REPORT INFORMATION
  Report Type: Spontaneous
  Country: US (occurrence: US)
  Receive Date: 20240517
  Receipt Date: 20240530
  Transmission Date: 20240716
  Serious: No
  Sender: FDA-Public Use
  Company Number: US-BAYER-2024A072436

PATIENT
  Age: 7 Year
  Sex: Female

DRUGS (2)
  1. CLARITIN [Suspect]
     Active Substance: LORATADINE
     Dosage: 2 DF
     Dates: start: 20240512
  2. CLARITIN [Suspect]
     Active Substance: LORATADINE
     Dosage: 1 DF
     Dates: start: 20240515

REACTIONS (2)
  - Epistaxis [Recovered/Resolved]
  - Eye swelling [None]

NARRATIVE: CASE EVENT DATE: 20240515
